FAERS Safety Report 16434331 (Version 2)
Quarter: 2019Q2

REPORT INFORMATION
  Report Type: Spontaneous
  Country: US (occurrence: US)
  Receive Date: 20190614
  Receipt Date: 20190619
  Transmission Date: 20190711
  Serious: Yes (Death, Other)
  Sender: FDA-Public Use
  Company Number: US-KERYX BIOPHARMACEUTICALS INC.-2019US005292

PATIENT
  Sex: Female

DRUGS (2)
  1. IRON [Suspect]
     Active Substance: IRON
     Dosage: UNK
     Route: 042
  2. AURYXIA [Suspect]
     Active Substance: TETRAFERRIC TRICITRATE DECAHYDRATE
     Indication: HYPERPHOSPHATAEMIA
     Dosage: 1-2 TABLETS, QD WITH MEALS
     Route: 048

REACTIONS (2)
  - Iron overload [Unknown]
  - Death [Fatal]

NARRATIVE: CASE EVENT DATE: 201905
